FAERS Safety Report 9375123 (Version 1)
Quarter: 2013Q2

REPORT INFORMATION
  Report Type: Spontaneous
  Country: US (occurrence: US)
  Receive Date: 20130628
  Receipt Date: 20130628
  Transmission Date: 20140414
  Serious: Yes (Hospitalization, Other)
  Sender: FDA-Public Use
  Company Number: US-ELI_LILLY_AND_COMPANY-US201306005596

PATIENT
  Age: 51 Year
  Sex: Female

DRUGS (12)
  1. CYMBALTA [Suspect]
     Indication: PAIN
     Dosage: 60 MG, QD
     Dates: start: 20130114
  2. CYMBALTA [Suspect]
     Indication: NERVE COMPRESSION
  3. NEURONTIN [Concomitant]
     Dosage: UNK
  4. LOVENOX [Concomitant]
     Dosage: UNK
     Dates: start: 201306
  5. COUMADIN                           /00014802/ [Concomitant]
     Dosage: UNK
  6. BABY ASPIRIN [Concomitant]
     Dosage: UNK
  7. LOPRESSOR [Concomitant]
     Dosage: UNK
  8. LIPITOR [Concomitant]
     Indication: PROPHYLAXIS
     Dosage: UNK
  9. EFFIENT [Concomitant]
     Dosage: UNK
  10. LISINOPRIL [Concomitant]
     Dosage: UNK
  11. CLONAZEPAN [Concomitant]
  12. HYDROCODONE [Concomitant]

REACTIONS (7)
  - Myocardial infarction [Unknown]
  - Thrombosis [Unknown]
  - Self-injurious ideation [Unknown]
  - Nervousness [Unknown]
  - Agitation [Unknown]
  - Soliloquy [Unknown]
  - Drug withdrawal syndrome [Unknown]
